FAERS Safety Report 13406569 (Version 1)
Quarter: 2017Q2

REPORT INFORMATION
  Report Type: Spontaneous
  Country: AT (occurrence: AT)
  Receive Date: 20170405
  Receipt Date: 20170405
  Transmission Date: 20170830
  Serious: Yes (Death, Other)
  Sender: FDA-Public Use
  Company Number: AT-BIOGEN-2013BI111631

PATIENT
  Age: 34 Year
  Sex: Female
  Weight: 58 kg

DRUGS (1)
  1. TYSABRI [Suspect]
     Active Substance: NATALIZUMAB
     Indication: MULTIPLE SCLEROSIS
     Route: 042
     Dates: start: 20100611, end: 20131107

REACTIONS (5)
  - Allergic transfusion reaction [Unknown]
  - Progressive multifocal leukoencephalopathy [Unknown]
  - Intracranial haemangioma [Unknown]
  - Immune reconstitution inflammatory syndrome [Unknown]
  - Brain oedema [Fatal]

NARRATIVE: CASE EVENT DATE: 201308
